FAERS Safety Report 6627658-0 (Version None)
Quarter: 2010Q1

REPORT INFORMATION
  Report Type: 
  Country: None (occurrence: None)
  Receive Date: 20100308
  Receipt Date: 20100220
  Transmission Date: 20100710
  Serious: Yes (Life-Threatening, Other)
  Sender: FDA-Public Use
  Company Number: 2010AP000349

PATIENT
  Age: 39 Year
  Sex: Female

DRUGS (4)
  1. SERTRALINE HCL [Suspect]
     Dosage: 100 MG; QD
  2. FENTANYL [Suspect]
     Dosage: 50 UG; QD
  3. OCTREOTIDE ACETATE [Concomitant]
  4. PANTOPRAZOLE [Concomitant]

REACTIONS (7)
  - AMMONIA INCREASED [None]
  - DRUG INTERACTION [None]
  - MALLORY-WEISS SYNDROME [None]
  - RHABDOMYOLYSIS [None]
  - SEROTONIN SYNDROME [None]
  - SOMNOLENCE [None]
  - VARICES OESOPHAGEAL [None]
